FAERS Safety Report 5207506-6 (Version None)
Quarter: 2006Q4

REPORT INFORMATION
  Report Type: 
  Country: None (occurrence: None)
  Receive Date: 20061030
  Receipt Date: 20060818
  Transmission Date: 20070319
  Serious: No
  Sender: FDA-Public Use
  Company Number: 2006CT000584

PATIENT
  Age: 36 Year
  Sex: Female
  Weight: 97.977 kg

DRUGS (5)
  1. VENTAVIS [Suspect]
     Indication: PULMONARY HYPERTENSION
     Dosage: 5 UG; 6XD; INH
     Route: 055
     Dates: start: 20060301
  2. SPIRONOLACTONE [Concomitant]
  3. AMLODIPINE [Concomitant]
  4. FUROSEMIDE [Concomitant]
  5. LISINOPRIL [Concomitant]

REACTIONS (8)
  - ABDOMINAL PAIN [None]
  - CHEST PAIN [None]
  - FLUID OVERLOAD [None]
  - JUGULAR VEIN DISTENSION [None]
  - NAUSEA [None]
  - OEDEMA PERIPHERAL [None]
  - PRODUCTIVE COUGH [None]
  - VOMITING [None]
